FAERS Safety Report 20089639 (Version 1)
Quarter: 2021Q4

REPORT INFORMATION
  Report Type: Spontaneous
  Country: FR (occurrence: FR)
  Receive Date: 20211119
  Receipt Date: 20211119
  Transmission Date: 20220303
  Serious: Yes (Hospitalization)
  Sender: FDA-Public Use
  Company Number: None

PATIENT

DRUGS (2)
  1. METRONIDAZOLE [Suspect]
     Active Substance: METRONIDAZOLE
     Indication: Infection
     Dosage: 1 DOSAGE FORM
     Route: 065
     Dates: start: 20210907
  2. AZTREONAM [Concomitant]
     Active Substance: AZTREONAM
     Indication: Infection
     Dosage: UNK
     Dates: start: 20210901

REACTIONS (2)
  - Pyrexia [Not Recovered/Not Resolved]
  - Product use in unapproved indication [Recovered/Resolved]

NARRATIVE: CASE EVENT DATE: 20210901
